FAERS Safety Report 7900104-2 (Version None)
Quarter: 2011Q4

REPORT INFORMATION
  Report Type: 
  Country: None (occurrence: None)
  Receive Date: 20111108
  Receipt Date: 20111102
  Transmission Date: 20120403
  Serious: No
  Sender: FDA-Public Use
  Company Number: US-BIOGENIDEC-2011BI041884

PATIENT
  Age: 32 Year
  Sex: Female

DRUGS (3)
  1. AVONEX [Suspect]
     Indication: MULTIPLE SCLEROSIS
     Route: 030
     Dates: start: 20080801
  2. AVONEX [Suspect]
     Route: 030
     Dates: start: 20020809, end: 20040510
  3. AVONEX [Suspect]
     Route: 030
     Dates: start: 20050608, end: 20070711

REACTIONS (2)
  - HYPERTONIC BLADDER [None]
  - URINARY TRACT INFECTION [None]
